FAERS Safety Report 13204190 (Version 3)
Quarter: 2017Q2

REPORT INFORMATION
  Report Type: Spontaneous
  Country: JP (occurrence: JP)
  Receive Date: 20170209
  Receipt Date: 20170410
  Transmission Date: 20170830
  Serious: Yes (Hospitalization)
  Sender: FDA-Public Use
  Company Number: JP-GLAXOSMITHKLINE-JP2017JPN014630

PATIENT
  Age: 12 Year
  Sex: Male
  Weight: 35 kg

DRUGS (7)
  1. MEPOLIZUMAB [Suspect]
     Active Substance: MEPOLIZUMAB
     Dosage: 100 MG, 1D
     Route: 058
     Dates: start: 20170208, end: 20170208
  2. MEPOLIZUMAB [Suspect]
     Active Substance: MEPOLIZUMAB
     Dosage: UNK
  3. IPD [Concomitant]
     Active Substance: SUPLATAST TOSILATE
     Indication: ASTHMA
     Dosage: 200 MG, 1D
  4. SERETIDE [Concomitant]
     Active Substance: FLUTICASONE PROPIONATE\SALMETEROL XINAFOATE
     Indication: ASTHMA
     Dosage: 500 ?G, 1D
     Dates: start: 20151112
  5. MEPOLIZUMAB [Suspect]
     Active Substance: MEPOLIZUMAB
     Indication: ASTHMA
     Dosage: 100 MG, 1D
     Route: 058
     Dates: start: 20161128, end: 20161128
  6. MEPOLIZUMAB [Suspect]
     Active Substance: MEPOLIZUMAB
     Dosage: 100 MG, 1D
     Route: 058
     Dates: start: 20161226, end: 20161226
  7. SINGULAIR CHEWABLE TABLETS [Concomitant]
     Indication: ASTHMA
     Dosage: 5 MG, 1D

REACTIONS (2)
  - Histiocytic necrotising lymphadenitis [Recovered/Resolved]
  - Pyrexia [Recovered/Resolved]

NARRATIVE: CASE EVENT DATE: 20170109
